FAERS Safety Report 18335233 (Version 1)
Quarter: 2020Q4

REPORT INFORMATION
  Report Type: Spontaneous
  Country: GB (occurrence: GB)
  Receive Date: 20201001
  Receipt Date: 20201001
  Transmission Date: 20210113
  Serious: Yes (Other)
  Sender: FDA-Public Use
  Company Number: GB-GILEAD-2020-0496743

PATIENT
  Age: 51 Year
  Sex: Female

DRUGS (3)
  1. EMTRICITABINE/TENOFOVIR DF [Suspect]
     Active Substance: EMTRICITABINE
     Indication: PRODUCT USED FOR UNKNOWN INDICATION
     Dosage: 200/245 OD
     Route: 048
  2. DARUNAVIR [Concomitant]
     Active Substance: DARUNAVIR
  3. RITONAVIR. [Concomitant]
     Active Substance: RITONAVIR

REACTIONS (2)
  - Somnambulism [Unknown]
  - Somnolence [Unknown]
